FAERS Safety Report 6475841-X (Version None)
Quarter: 2009Q4

REPORT INFORMATION
  Report Type: 
  Country: None (occurrence: None)
  Receive Date: 20091204
  Receipt Date: 20091120
  Transmission Date: 20100525
  Serious: Yes (Hospitalization, Other)
  Sender: FDA-Public Use
  Company Number: US-PFIZER INC-2009305095

PATIENT
  Age: 16 Year
  Sex: Male

DRUGS (14)
  1. ZIPRASIDONE HCL [Suspect]
     Indication: TIC
  2. FLUOXETINE HCL [Interacting]
     Indication: ANXIETY
     Dosage: 30MG
  3. HALOPERIDOL [Suspect]
  4. MIDAZOLAM HCL [Suspect]
  5. RISPERIDONE [Suspect]
     Indication: TOURETTE'S DISORDER
  6. LEVETIRACETAM [Suspect]
  7. TOPIRAMATE [Suspect]
  8. ZOLPIDEM [Suspect]
  9. TETRABENAZINE [Suspect]
  10. OXYCARDIN [Suspect]
  11. PIMOZIDE [Interacting]
  12. ARIPIPRAZOLE [Suspect]
  13. BENZATROPINE [Suspect]
     Indication: TOURETTE'S DISORDER
  14. FLUPHENAZINE [Suspect]

REACTIONS (11)
  - BLOOD PROLACTIN INCREASED [None]
  - DECREASED APPETITE [None]
  - DEPRESSION [None]
  - DRUG INTERACTION [None]
  - DRUG TOXICITY [None]
  - ELECTROCARDIOGRAM QT PROLONGED [None]
  - LETHARGY [None]
  - MUSCULOSKELETAL STIFFNESS [None]
  - SUICIDAL IDEATION [None]
  - TIC [None]
  - WEIGHT INCREASED [None]
